FAERS Safety Report 9613557 (Version 1)
Quarter: 2013Q4

REPORT INFORMATION
  Report Type: Spontaneous
  Country: US (occurrence: US)
  Receive Date: 20131010
  Receipt Date: 20131010
  Transmission Date: 20140711
  Serious: Yes (Other)
  Sender: FDA-Public Use
  Company Number: US-TEVA-437034USA

PATIENT
  Age: 28 Year
  Sex: Female
  Weight: 63.11 kg

DRUGS (1)
  1. PARAGARD 380A [Suspect]
     Indication: CONTRACEPTION
     Dates: start: 20130624, end: 20130926

REACTIONS (1)
  - Device dislocation [Recovered/Resolved]
